FAERS Safety Report 12293848 (Version 1)
Quarter: 2016Q2

REPORT INFORMATION
  Report Type: Report from Study
  Country: DE (occurrence: DE)
  Receive Date: 20160422
  Receipt Date: 20160422
  Transmission Date: 20160815
  Serious: Yes (Hospitalization, Other)
  Sender: FDA-Public Use
  Company Number: DE-ABBVIE-16K-062-1606715-00

PATIENT
  Age: 71 Year
  Sex: Female

DRUGS (2)
  1. HUMIRA [Suspect]
     Active Substance: ADALIMUMAB
     Indication: PSORIASIS
     Route: 058
     Dates: start: 20140215, end: 20150920
  2. CANDESARTAN [Concomitant]
     Active Substance: CANDESARTAN
     Indication: PRODUCT USED FOR UNKNOWN INDICATION

REACTIONS (9)
  - Cholelithiasis [Recovering/Resolving]
  - General physical health deterioration [Recovering/Resolving]
  - Uterine polyp [Not Recovered/Not Resolved]
  - Blood test abnormal [Recovering/Resolving]
  - Wound [Recovered/Resolved]
  - Thrombophlebitis [Recovered/Resolved]
  - Anaemia [Recovering/Resolving]
  - Oedema [Recovered/Resolved]
  - Renal impairment [Recovering/Resolving]

NARRATIVE: CASE EVENT DATE: 201511
